FAERS Safety Report 6628796-9 (Version None)
Quarter: 2010Q1

REPORT INFORMATION
  Report Type: 
  Country: None (occurrence: None)
  Receive Date: 20100311
  Receipt Date: 20100225
  Transmission Date: 20100710
  Serious: Yes (Other)
  Sender: FDA-Public Use
  Company Number: ES-CELGENEUS-144-50794-10030008

PATIENT
  Age: 65 Year
  Sex: Female

DRUGS (1)
  1. VIDAZA [Suspect]
     Route: 058
     Dates: start: 20100101, end: 20100201

REACTIONS (3)
  - ALANINE AMINOTRANSFERASE INCREASED [None]
  - ASPARTATE AMINOTRANSFERASE INCREASED [None]
  - TRANSAMINASES INCREASED [None]
